FAERS Safety Report 10462676 (Version 3)
Quarter: 2015Q2

REPORT INFORMATION
  Report Type: Spontaneous
  Country: US (occurrence: US)
  Receive Date: 20140918
  Receipt Date: 20150515
  Transmission Date: 20150821
  Serious: Yes (Death)
  Sender: FDA-Public Use
  Company Number: US-PFIZER INC-2014256457

PATIENT
  Age: 67 Year
  Sex: Male

DRUGS (9)
  1. VALACYCLOVIR [Concomitant]
     Active Substance: VALACYCLOVIR HYDROCHLORIDE
     Dosage: 500 MG, UNK
  2. VFEND [Suspect]
     Active Substance: VORICONAZOLE
     Indication: LUNG INFECTION
     Dosage: 200 MG, 2X/DAY
     Route: 048
     Dates: start: 20140719
  3. MAGNESIUM [Concomitant]
     Active Substance: MAGNESIUM
     Dosage: 266 MG, UNK
     Route: 048
  4. NIACIN. [Concomitant]
     Active Substance: NIACIN
     Dosage: 300 MG, UNK
  5. ALLOPURINOL. [Concomitant]
     Active Substance: ALLOPURINOL
     Dosage: 300 MG, UNK
  6. CITALOPRAM [Concomitant]
     Active Substance: CITALOPRAM HYDROBROMIDE
     Dosage: 20 MG, UNK
     Route: 048
  7. CIPROFLOXACIN. [Concomitant]
     Active Substance: CIPROFLOXACIN
     Dosage: 500 MG, UNK
  8. FINASTERIDE. [Concomitant]
     Active Substance: FINASTERIDE
     Dosage: 5 MG, UNK
  9. HEPARIN FLUSH [Concomitant]
     Dosage: 100 IU/ML, UNK

REACTIONS (3)
  - Renal failure [Fatal]
  - Infection [Fatal]
  - Acute myeloid leukaemia [Fatal]
